FAERS Safety Report 7728526-3 (Version None)
Quarter: 2011Q3

REPORT INFORMATION
  Report Type: 
  Country: None (occurrence: None)
  Receive Date: 20110906
  Receipt Date: 20110824
  Transmission Date: 20111222
  Serious: No
  Sender: FDA-Public Use
  Company Number: US-BIOGENIDEC-2011BI011101

PATIENT
  Age: 46 Year
  Sex: Female

DRUGS (1)
  1. TYSABRI [Suspect]
     Indication: MULTIPLE SCLEROSIS
     Route: 042
     Dates: start: 20100728, end: 20110316

REACTIONS (5)
  - BONE PAIN [None]
  - SENSORY DISTURBANCE [None]
  - DRUG INEFFECTIVE [None]
  - NECK PAIN [None]
  - ARTHRALGIA [None]
